FAERS Safety Report 17659309 (Version 1)
Quarter: 2020Q2

REPORT INFORMATION
  Report Type: Spontaneous
  Country: US (occurrence: US)
  Receive Date: 20200413
  Receipt Date: 20200413
  Transmission Date: 20200713
  Serious: No
  Sender: FDA-Public Use
  Company Number: US-BION-008399

PATIENT
  Age: 59 Year
  Sex: Female

DRUGS (3)
  1. MOTRIN [Suspect]
     Active Substance: IBUPROFEN
     Indication: PRODUCT USED FOR UNKNOWN INDICATION
  2. ALEVE [Suspect]
     Active Substance: NAPROXEN SODIUM
     Indication: PAIN
     Dosage: 2 PER DAY
     Route: 048
  3. NAPROXEN SODIUM. [Suspect]
     Active Substance: NAPROXEN SODIUM
     Indication: PAIN
     Dosage: 2 PER DAY. 1 EVERY 8 TO 12 HOURS.
     Route: 048

REACTIONS (5)
  - Incorrect product administration duration [Not Recovered/Not Resolved]
  - Product prescribing error [Not Recovered/Not Resolved]
  - Weight increased [Unknown]
  - Product physical consistency issue [Unknown]
  - Therapeutic product effect delayed [Not Recovered/Not Resolved]
